FAERS Safety Report 16958233 (Version 1)
Quarter: 2019Q4

REPORT INFORMATION
  Report Type: Spontaneous
  Country: CN (occurrence: CN)
  Receive Date: 20191024
  Receipt Date: 20191024
  Transmission Date: 20200122
  Serious: Yes (Hospitalization, Other)
  Sender: FDA-Public Use
  Company Number: CN-PFIZER INC-2019456867

PATIENT
  Age: 28 Year
  Sex: Male
  Weight: 61 kg

DRUGS (5)
  1. CYTARABINE HYDROCHLORIDE [Suspect]
     Active Substance: CYTARABINE HYDROCHLORIDE
     Dosage: 200 MG, 1X/DAY
     Route: 041
     Dates: start: 20190905, end: 20190905
  2. ZAVEDOS [Suspect]
     Active Substance: IDARUBICIN
     Indication: ACUTE MYELOID LEUKAEMIA
     Dosage: 20 MG, 1X/DAY
     Route: 042
     Dates: start: 20190903, end: 20190903
  3. CYTARABINE HYDROCHLORIDE [Suspect]
     Active Substance: CYTARABINE HYDROCHLORIDE
     Indication: ACUTE MYELOID LEUKAEMIA
     Dosage: 200 MG, 1X/DAY
     Route: 041
     Dates: start: 20190903, end: 20190904
  4. ZAVEDOS [Suspect]
     Active Substance: IDARUBICIN
     Dosage: 10 MG, 1X/DAY
     Route: 042
     Dates: start: 20190904, end: 20190905
  5. CYTARABINE HYDROCHLORIDE [Suspect]
     Active Substance: CYTARABINE HYDROCHLORIDE
     Dosage: 200 MG, 1X/DAY
     Route: 041
     Dates: start: 20190906, end: 20190909

REACTIONS (6)
  - Chills [Recovering/Resolving]
  - Headache [Recovering/Resolving]
  - Ecchymosis [Unknown]
  - Dizziness [Recovering/Resolving]
  - Pyrexia [Recovering/Resolving]
  - Bone marrow failure [Recovering/Resolving]

NARRATIVE: CASE EVENT DATE: 20190905
